FAERS Safety Report 8052241-2 (Version None)
Quarter: 2012Q1

REPORT INFORMATION
  Report Type: 
  Country: None (occurrence: None)
  Receive Date: 20120118
  Receipt Date: 20120110
  Transmission Date: 20120608
  Serious: Yes (Other)
  Sender: FDA-Public Use
  Company Number: US-JNJFOC-20111207359

PATIENT
  Sex: Male

DRUGS (5)
  1. REMICADE [Suspect]
     Route: 042
     Dates: start: 20111205
  2. NEXIUM [Concomitant]
     Route: 065
  3. ALBUTEROL [Concomitant]
     Route: 065
  4. REMICADE [Suspect]
     Indication: CROHN'S DISEASE
     Route: 042
     Dates: start: 20111125
  5. IMURAN [Concomitant]
     Indication: CROHN'S DISEASE
     Route: 065

REACTIONS (3)
  - ASTHMA [None]
  - VIRAL INFECTION [None]
  - COUGH [None]
